FAERS Safety Report 4639949-3 (Version None)
Quarter: 2005Q2

REPORT INFORMATION
  Report Type: 
  Country: None (occurrence: None)
  Receive Date: 20050420
  Receipt Date: 20050408
  Transmission Date: 20051028
  Serious: Yes (Hospitalization)
  Sender: FDA-Public Use
  Company Number: GB-BRISTOL-MYERS SQUIBB COMPANY-12930046

PATIENT
  Age: 55 Year
  Sex: Female

DRUGS (2)
  1. CETUXIMAB [Suspect]
     Indication: COLORECTAL CANCER
     Dosage: MOST RECENT CETUXIMAB INFUSION ADMINISTERED ON 30-MAR-2005 (2ND).
     Route: 041
     Dates: start: 20050330, end: 20050330
  2. IRINOTECAN HCL [Suspect]
     Indication: COLORECTAL CANCER
     Dosage: INITIAL AND MOST RECENT IRINOTECAN INFUSION ADMINISTERED ON 23-MAR-2005.
     Route: 042
     Dates: start: 20050323, end: 20050323

REACTIONS (4)
  - DIARRHOEA [None]
  - MUCOSAL INFLAMMATION [None]
  - NEUTROPENIA [None]
  - RASH [None]
